FAERS Safety Report 9857115 (Version 2)
Quarter: 2014Q2

REPORT INFORMATION
  Report Type: Spontaneous
  Country: BR (occurrence: None)
  Receive Date: 20140128
  Receipt Date: 20140617
  Transmission Date: 20141212
  Serious: Yes (Other)
  Sender: FDA-Public Use
  Company Number: 7264970

PATIENT
  Age: 46 Year
  Sex: Male

DRUGS (2)
  1. EUTHYROX [Suspect]
     Indication: PRODUCT USED FOR UNKNOWN INDICATION
     Dates: start: 20130101, end: 20131218
  2. LOSARTAN POTASSIUM (LOSARTAN POTASSIUM) (50 MG, TABLET) (LOSARTAN POTASSIUM) [Concomitant]

REACTIONS (2)
  - Blood thyroid stimulating hormone increased [None]
  - Drug ineffective [None]
